FAERS Safety Report 5051586-8 (Version None)
Quarter: 2006Q3

REPORT INFORMATION
  Report Type: 
  Country: None (occurrence: None)
  Receive Date: 20060711
  Receipt Date: 20060623
  Transmission Date: 20061208
  Serious: No
  Sender: FDA-Public Use
  Company Number: US200602001654

PATIENT
  Age: 54 Year
  Sex: Female
  Weight: 59 kg

DRUGS (13)
  1. ZYPREXA [Suspect]
     Indication: BIPOLAR DISORDER
     Dosage: SEE IMAGE
     Route: 048
     Dates: start: 20021119, end: 20030812
  2. ZYPREXA [Suspect]
     Indication: BIPOLAR DISORDER
     Dosage: SEE IMAGE
     Route: 048
     Dates: start: 19980101
  3. ZYPREXA [Suspect]
     Indication: BIPOLAR DISORDER
     Dosage: SEE IMAGE
     Route: 048
     Dates: start: 20020821
  4. ZYPREXA [Suspect]
     Indication: BIPOLAR DISORDER
     Dosage: SEE IMAGE
     Route: 048
     Dates: start: 20030812
  5. CLONAZEPAM [Concomitant]
  6. FENOFIBRATE [Concomitant]
  7. LITHIUM CARBONATE [Concomitant]
  8. TRAZODONE HCL [Concomitant]
  9. BUPROPION HCL [Concomitant]
  10. DIAZEPAM [Concomitant]
  11. PREMARIN [Concomitant]
  12. PROGESTERONE [Concomitant]
  13. QUININE SULFATE [Concomitant]

REACTIONS (6)
  - DIABETES MELLITUS NON-INSULIN-DEPENDENT [None]
  - GLYCOSYLATED HAEMOGLOBIN INCREASED [None]
  - HAEMATOCHEZIA [None]
  - INSULIN C-PEPTIDE DECREASED [None]
  - NEUROPATHY [None]
  - WEIGHT DECREASED [None]
